FAERS Safety Report 5932371-9 (Version None)
Quarter: 2008Q4

REPORT INFORMATION
  Report Type: 
  Country: None (occurrence: None)
  Receive Date: 20081009
  Receipt Date: 20080225
  Transmission Date: 20090506
  Serious: Yes (Other)
  Sender: FDA-Public Use
  Company Number: PHEH2006US09630

PATIENT
  Age: 47 Year
  Sex: Male
  Weight: 83.9 kg

DRUGS (8)
  1. ZOMETA [Suspect]
     Indication: OSTEOPOROSIS
     Dosage: 4 MG, QMO, INTRAVENOUS
     Route: 042
     Dates: start: 20040612, end: 20060922
  2. OXYCONTIN [Concomitant]
  3. LORTAB [Concomitant]
  4. ALLEGRA [Concomitant]
  5. LEXAPRO [Concomitant]
  6. FAMOTIDINE [Concomitant]
  7. CLONAZEPAM [Concomitant]
  8. GASTROCROM (CROMOGLICATE SODIUM) [Concomitant]

REACTIONS (18)
  - ANXIETY [None]
  - BONE DISORDER [None]
  - BONE FRAGMENTATION [None]
  - BREATH ODOUR [None]
  - DENTAL CARE [None]
  - GINGIVAL DISORDER [None]
  - HAEMORRHAGE [None]
  - INJURY [None]
  - OSTEONECROSIS [None]
  - PAIN [None]
  - PAIN IN JAW [None]
  - SENSITIVITY OF TEETH [None]
  - SINUS POLYP [None]
  - SINUSITIS [None]
  - SWELLING [None]
  - TOOTH DISORDER [None]
  - TOOTH EXTRACTION [None]
  - WOUND DRAINAGE [None]
